FAERS Safety Report 8839851 (Version 1)
Quarter: 2012Q4

REPORT INFORMATION
  Report Type: 
  Country: US (occurrence: US)
  Receive Date: 20121015
  Receipt Date: 20121015
  Transmission Date: 20130627
  Serious: No
  Sender: FDA-Public Use
  Company Number: US-BRISTOL-MYERS SQUIBB COMPANY-16802753

PATIENT
  Age: 48 Year
  Sex: Female

DRUGS (1)
  1. KENALOG-40 INJ [Suspect]

REACTIONS (2)
  - Injection site reaction [Unknown]
  - Tendon disorder [Unknown]
